FAERS Safety Report 16233196 (Version 1)
Quarter: 2019Q2

REPORT INFORMATION
  Report Type: Spontaneous
  Country: GB (occurrence: GB)
  Receive Date: 20190424
  Receipt Date: 20190424
  Transmission Date: 20190711
  Serious: Yes (Hospitalization)
  Sender: FDA-Public Use
  Company Number: GB-ASTRAZENECA-2019SE61109

PATIENT
  Age: 61 Year
  Sex: Female

DRUGS (15)
  1. IPRATROPIUM [Concomitant]
     Active Substance: IPRATROPIUM
  2. PREGABALIN. [Concomitant]
     Active Substance: PREGABALIN
  3. LORAZEPAM. [Concomitant]
     Active Substance: LORAZEPAM
  4. PARACETAMOL [Concomitant]
     Active Substance: ACETAMINOPHEN
  5. DOXYCYCLINE. [Concomitant]
     Active Substance: DOXYCYCLINE
  6. FUROSEMIDE. [Concomitant]
     Active Substance: FUROSEMIDE
  7. BECLOMETASONE DIPROPIONATE [Concomitant]
     Active Substance: BECLOMETHASONE DIPROPIONATE
  8. OMEPRAZOLE. [Suspect]
     Active Substance: OMEPRAZOLE
     Indication: GASTROOESOPHAGEAL REFLUX DISEASE
     Route: 048
     Dates: start: 20190321, end: 20190329
  9. SERTRALINE [Concomitant]
     Active Substance: SERTRALINE HYDROCHLORIDE
  10. ALENDRONIC ACID [Concomitant]
     Active Substance: ALENDRONIC ACID
  11. CARBOCISTEINE [Concomitant]
     Active Substance: CARBOCYSTEINE
  12. BISOPROLOL [Concomitant]
     Active Substance: BISOPROLOL
  13. SALBUTAMOL [Concomitant]
     Active Substance: ALBUTEROL
  14. ADCAL-D3 [Concomitant]
     Active Substance: CALCIUM CARBONATE\CHOLECALCIFEROL
  15. CASSIA SENNA [Concomitant]
     Active Substance: HERBALS\SENNOSIDES

REACTIONS (7)
  - Chest pain [Unknown]
  - Skin discolouration [Unknown]
  - Asthenia [Unknown]
  - Dyspnoea [Not Recovered/Not Resolved]
  - Diarrhoea [Recovering/Resolving]
  - Anxiety [Unknown]
  - Chronic obstructive pulmonary disease [Unknown]

NARRATIVE: CASE EVENT DATE: 20190328
